FAERS Safety Report 23508390 (Version 2)
Quarter: 2024Q3

REPORT INFORMATION
  Report Type: Spontaneous
  Country: US (occurrence: US)
  Receive Date: 20240209
  Receipt Date: 20240916
  Transmission Date: 20241017
  Serious: No
  Sender: AMGEN
  Company Number: US-AMGEN-USASP2024026182

PATIENT
  Sex: Male

DRUGS (6)
  1. RITUXIMAB [Suspect]
     Active Substance: RITUXIMAB
     Indication: Pemphigoid
     Dosage: 1000 MILLIGRAM ON DAY 0 AND 15
     Route: 042
  2. OMALIZUMAB [Concomitant]
     Active Substance: OMALIZUMAB
     Indication: Pemphigoid
     Dosage: 300 MILLIGRAM, Q2WK
     Route: 058
  3. DOXYCYCLINE [Concomitant]
     Active Substance: DOXYCYCLINE\DOXYCYCLINE HYCLATE
     Indication: Pemphigoid
     Dosage: UNK
     Route: 065
  4. NIACINAMIDE [Concomitant]
     Active Substance: NIACINAMIDE
     Indication: Pemphigoid
     Dosage: UNK
     Route: 065
  5. HUMAN IMMUNOGLOBULIN G [Concomitant]
     Active Substance: HUMAN IMMUNOGLOBULIN G
     Indication: Pemphigoid
     Dosage: UNK
     Route: 065
  6. METHOTREXATE [Concomitant]
     Active Substance: METHOTREXATE
     Indication: Pemphigoid
     Dosage: UNK
     Route: 065

REACTIONS (6)
  - Drug effective for unapproved indication [Unknown]
  - Off label use [Unknown]
  - Arthralgia [Unknown]
  - Fatigue [Unknown]
  - Headache [Unknown]
  - Myalgia [Unknown]
